FAERS Safety Report 4925233-7 (Version None)
Quarter: 2006Q1

REPORT INFORMATION
  Report Type: 
  Country: None (occurrence: None)
  Receive Date: 20060223
  Receipt Date: 20060223
  Transmission Date: 20060701
  Serious: Yes (Hospitalization)
  Sender: FDA-Public Use
  Company Number: None

PATIENT
  Sex: Male

DRUGS (2)
  1. CAPATICABINE [Suspect]
     Indication: PANCREATIC CARCINOMA
     Dosage: 1600 MG/M2 /DAY PO DAY 1 THROUGH DAY 14
     Route: 048
  2. DOCETAXEL [Suspect]
     Indication: PANCREATIC CARCINOMA
     Dosage: 30 MG/M2 IV DAY 1 AND DAY 8
     Route: 042

REACTIONS (1)
  - CATHETER RELATED COMPLICATION [None]
